FAERS Safety Report 6075668-7 (Version None)
Quarter: 2009Q1

REPORT INFORMATION
  Report Type: 
  Country: None (occurrence: None)
  Receive Date: 20090209
  Receipt Date: 20090205
  Transmission Date: 20090719
  Serious: Yes (Life-Threatening, Hospitalization)
  Sender: FDA-Public Use
  Company Number: 2009SP001209

PATIENT
  Age: 58 Year
  Sex: Male

DRUGS (15)
  1. NOXAFIL [Suspect]
     Indication: FUNGAL INFECTION
     Dosage: 600 MG, QD; PO
     Route: 048
     Dates: start: 20080804, end: 20081128
  2. VINCRISTINE [Suspect]
     Indication: LYMPHOCYTIC LEUKAEMIA
     Dosage: 2 MG, ONCE;
     Dates: start: 20081125, end: 20081125
  3. BLEOMYCIN [Concomitant]
  4. VORICONAZOLE [Concomitant]
  5. PREDNISOLONE [Concomitant]
  6. DIXORUBICINE [Concomitant]
  7. ETOPOSIDE [Concomitant]
  8. CYCLOPHOSPHAMIDE [Concomitant]
  9. BACTRIM [Concomitant]
  10. LANSOPRAZOLE [Concomitant]
  11. ENTECAVIR [Concomitant]
  12. FILGRASTIM [Concomitant]
  13. DELTACORTENE [Concomitant]
  14. ZYLORIC [Concomitant]
  15. ACYCLOVIR [Concomitant]

REACTIONS (4)
  - DISEASE RECURRENCE [None]
  - INTESTINAL OBSTRUCTION [None]
  - LYMPHADENOPATHY [None]
  - STEM CELL TRANSPLANT [None]
